FAERS Safety Report 5799456-1 (Version None)
Quarter: 2008Q3

REPORT INFORMATION
  Report Type: 
  Country: None (occurrence: None)
  Receive Date: 20080701
  Receipt Date: 20080701
  Transmission Date: 20090109
  Serious: Yes (Hospitalization)
  Sender: FDA-Public Use
  Company Number: None

PATIENT
  Age: 74 Year
  Sex: Male

DRUGS (3)
  1. LISINOPRIL [Suspect]
     Indication: DIABETES MELLITUS
     Dosage: 10 MG EVERY DAY PO
     Route: 048
     Dates: start: 20061103, end: 20080625
  2. LISINOPRIL [Suspect]
     Indication: PAIN
     Dosage: 10 MG EVERY DAY PO
     Route: 048
     Dates: start: 20061103, end: 20080625
  3. NORTRIPTYLINE HCL [Suspect]
     Dosage: 20 MG EVERY DAY PO
     Route: 048
     Dates: start: 20080110, end: 20080625

REACTIONS (7)
  - ASTHENIA [None]
  - BLOOD PRESSURE ORTHOSTATIC DECREASED [None]
  - DIZZINESS POSTURAL [None]
  - DYSPNOEA [None]
  - DYSSTASIA [None]
  - HEART RATE INCREASED [None]
  - HYPOTENSION [None]
